FAERS Safety Report 7820065-4 (Version None)
Quarter: 2011Q4

REPORT INFORMATION
  Report Type: 
  Country: None (occurrence: None)
  Receive Date: 20111018
  Receipt Date: 20111011
  Transmission Date: 20120403
  Serious: Yes (Other)
  Sender: FDA-Public Use
  Company Number: BR-PFIZER INC-2011244607

PATIENT
  Age: 55 Year
  Sex: Female
  Weight: 46 kg

DRUGS (7)
  1. LOSARTAN POTASSIUM [Concomitant]
     Indication: HYPERTENSION
     Dosage: UNK, 1X/DAY
  2. LOSARTAN POTASSIUM [Concomitant]
  3. VARENICLINE TARTRATE [Suspect]
     Indication: SMOKING CESSATION THERAPY
     Dosage: UNK
     Route: 048
     Dates: start: 20110901, end: 20110101
  4. CALCIUM [Concomitant]
     Indication: MINERAL SUPPLEMENTATION
     Dosage: UNK, 2X/DAY
  5. MELATONIN [Concomitant]
     Indication: HORMONE REPLACEMENT THERAPY
     Dosage: UNK, 1X/DAY
  6. VARENICLINE TARTRATE [Suspect]
     Dosage: ONE TABLET EVERY 12 HOURS
     Route: 048
     Dates: start: 20110101
  7. LEVOTHYROXINE SODIUM [Concomitant]
     Indication: THYROID DISORDER
     Dosage: UNK, 1X/DAY

REACTIONS (2)
  - DEPRESSED MOOD [None]
  - DYSSTASIA [None]
